FAERS Safety Report 7928009-1 (Version None)
Quarter: 2011Q4

REPORT INFORMATION
  Report Type: 
  Country: None (occurrence: None)
  Receive Date: 20111118
  Receipt Date: 20111116
  Transmission Date: 20120403
  Serious: No
  Sender: FDA-Public Use
  Company Number: US-PFIZER INC-2011280989

PATIENT
  Age: 91 Year
  Sex: Female

DRUGS (3)
  1. LIPITOR [Suspect]
     Indication: LOW DENSITY LIPOPROTEIN INCREASED
     Dosage: 10 MG, UNK (AWHILE AGO)
     Route: 048
  2. LIPITOR [Suspect]
     Dosage: 5 MG, 1X/DAY
  3. ZETIA [Concomitant]
     Dosage: UNK

REACTIONS (4)
  - GENERAL PHYSICAL CONDITION ABNORMAL [None]
  - INSOMNIA [None]
  - MYALGIA [None]
  - INFLUENZA LIKE ILLNESS [None]
